FAERS Safety Report 5121358-4 (Version None)
Quarter: 2006Q4

REPORT INFORMATION
  Report Type: 
  Country: None (occurrence: None)
  Receive Date: 20061002
  Receipt Date: 20060919
  Transmission Date: 20070319
  Serious: Yes (Death, Hospitalization)
  Sender: FDA-Public Use
  Company Number: APP200600265

PATIENT
  Age: 62 Year
  Sex: Male

DRUGS (10)
  1. CISPLATIN INJECTION (CISPLATIN INJECTION) [Suspect]
     Indication: NON-SMALL CELL LUNG CANCER
     Dosage: (60 MG/M2, TOTAL OF TWO COURSES), INTRAVENOUS
     Route: 042
  2. CARBOPLATIN FOR INJECTION, USP (CARBOPLATIN FOR INJECTION, USP) [Suspect]
     Indication: NON-SMALL CELL LUNG CANCER
     Dosage: AUC OF 6 (TOTAL OF THREE COURSES), INTRAVENOUS
     Route: 042
  3. ETOPOSIDE (ETOPOSIDE INJECTION, USP) [Suspect]
     Indication: NON-SMALL CELL LUNG CANCER
     Dosage: (120 MG/M2, TOTAL OF TWO COURSES), INTRAVENOUS
     Route: 042
  4. CYTARABINE [Concomitant]
  5. 9-NITROCAMPTOTHECIN [Concomitant]
  6. VINORELBINE [Concomitant]
  7. HYDROXYUREA [Concomitant]
  8. GEMCITABINE [Concomitant]
  9. PACLITAXEL [Concomitant]
  10. DOCETAXEL [Concomitant]

REACTIONS (7)
  - CHRONIC MYELOMONOCYTIC LEUKAEMIA [None]
  - GASTRIC PERFORATION [None]
  - MALIGNANT NEOPLASM PROGRESSION [None]
  - METASTASES TO ABDOMINAL CAVITY [None]
  - METASTASES TO LUNG [None]
  - THERAPY NON-RESPONDER [None]
  - TRISOMY 8 [None]
